FAERS Safety Report 4606321-1 (Version None)
Quarter: 2005Q1

REPORT INFORMATION
  Report Type: 
  Country: None (occurrence: None)
  Receive Date: 20050303
  Receipt Date: 20041231
  Transmission Date: 20050727
  Serious: No
  Sender: FDA-Public Use
  Company Number: 200510003BWH

PATIENT
  Age: 52 Year
  Sex: Male

DRUGS (1)
  1. LEVITRA [Suspect]

REACTIONS (5)
  - AFFECTIVE DISORDER [None]
  - DIZZINESS [None]
  - HEADACHE [None]
  - SINUS CONGESTION [None]
  - SOMNOLENCE [None]
